FAERS Safety Report 19270325 (Version 1)
Quarter: 2021Q2

REPORT INFORMATION
  Report Type: Spontaneous
  Country: GB (occurrence: GB)
  Receive Date: 20210518
  Receipt Date: 20210518
  Transmission Date: 20210717
  Serious: Yes (Other)
  Sender: FDA-Public Use
  Company Number: GB-DRREDDYS-GER/UKI/21/0135430

PATIENT
  Age: 48 Year
  Sex: Female
  Weight: 68.94 kg

DRUGS (1)
  1. FLUOXETINE [Suspect]
     Active Substance: FLUOXETINE HYDROCHLORIDE
     Indication: ANXIETY
     Dosage: 20MG
     Route: 048
     Dates: start: 20210419, end: 20210424

REACTIONS (6)
  - Gait inability [Unknown]
  - Illness [Recovered/Resolved]
  - Fatigue [Recovered/Resolved]
  - Psychological trauma [Unknown]
  - Abulia [Unknown]
  - Tremor [Unknown]

NARRATIVE: CASE EVENT DATE: 20210422
